FAERS Safety Report 10596393 (Version 2)
Quarter: 2015Q1

REPORT INFORMATION
  Report Type: Spontaneous
  Country: GB (occurrence: GB)
  Receive Date: 20141120
  Receipt Date: 20150109
  Transmission Date: 20150720
  Serious: Yes (Hospitalization, Other)
  Sender: FDA-Public Use
  Company Number: GB-ACTAVIS-2014-25567

PATIENT
  Sex: Female

DRUGS (6)
  1. MORPHINE (UNKNOWN) [Suspect]
     Active Substance: MORPHINE
     Indication: PRODUCT USED FOR UNKNOWN INDICATION
     Dosage: UNK (10 MG/ML, VIA IMPLANTABLE INFUSION PUMP)
     Route: 037
  2. CLONIDINE. [Suspect]
     Active Substance: CLONIDINE
     Indication: PRODUCT USED FOR UNKNOWN INDICATION
     Dosage: UNK (VIA IMPLANTABLE INFUSION PUMP)
     Route: 037
  3. CLONIDINE. [Suspect]
     Active Substance: CLONIDINE
     Dosage: UNK (REDUCED BY 75 %; VIA IMPLANTABLE INFUSION PUMP))
     Route: 037
  4. MORPHINE (UNKNOWN) [Suspect]
     Active Substance: MORPHINE
     Dosage: UNK (REDUCED BY 75 %; 10 MG/ML, VIA IMPLANTABLE INFUSION PUMP))
     Route: 037
  5. BACLOFEN. [Suspect]
     Active Substance: BACLOFEN
     Dosage: UNK (REDUCED BY 75 %, 3000 MCG/ML, VIA IMPLANTABLE INFUSION PUMP)
     Route: 037
  6. BACLOFEN. [Suspect]
     Active Substance: BACLOFEN
     Indication: PRODUCT USED FOR UNKNOWN INDICATION
     Dosage: UNK (3000 MCG/ML, VIA IMPLANTABLE INFUSION PUMP)
     Route: 037

REACTIONS (4)
  - Nausea [Unknown]
  - Somnolence [Unknown]
  - Mental status changes postoperative [Unknown]
  - Implant site extravasation [Unknown]

NARRATIVE: CASE EVENT DATE: 20141022
